FAERS Safety Report 6775591-6 (Version None)
Quarter: 2010Q2

REPORT INFORMATION
  Report Type: 
  Country: None (occurrence: None)
  Receive Date: 20100617
  Receipt Date: 20100609
  Transmission Date: 20101027
  Serious: Yes (Other)
  Sender: FDA-Public Use
  Company Number: US-MILLENNIUM PHARMACEUTICALS, INC.-2010-03001

PATIENT
  Sex: Female

DRUGS (39)
  1. VELCADE [Suspect]
     Indication: MULTIPLE MYELOMA
     Dosage: 1.3 MG/M2, CYCLIC
     Dates: start: 20100209
  2. REVLIMID [Suspect]
     Indication: MULTIPLE MYELOMA
     Dosage: 10 MG, CYCLIC
     Route: 048
     Dates: start: 20100209
  3. DEXAMETHASONE [Concomitant]
     Indication: MULTIPLE MYELOMA
     Dosage: 40 MG, QD
     Route: 048
     Dates: start: 20100119, end: 20100209
  4. DEXAMETHASONE [Concomitant]
     Dosage: 10 MG, QD
     Route: 048
     Dates: start: 20100209
  5. LIDOCAINE [Concomitant]
     Indication: PAIN
     Dosage: UNK, UNK
     Route: 061
  6. SIMVASTATIN [Concomitant]
     Indication: DRUG USE FOR UNKNOWN INDICATION
     Dosage: 20 MG, QD
  7. TUMS                               /00108001/ [Concomitant]
     Indication: DRUG USE FOR UNKNOWN INDICATION
     Dosage: UNK
     Route: 048
  8. WARFARIN [Concomitant]
     Indication: DEEP VEIN THROMBOSIS
     Dosage: 2.5 MG, UNK
     Route: 048
  9. WARFARIN [Concomitant]
     Dosage: 5 UNK, UNK
     Route: 048
  10. PROMETHAZINE [Concomitant]
     Indication: DRUG USE FOR UNKNOWN INDICATION
     Dosage: UNK
     Route: 048
  11. MIRALAX [Concomitant]
     Indication: DRUG USE FOR UNKNOWN INDICATION
     Dosage: 17 G, PRN
     Route: 048
  12. MILK OF MAGNESIA TAB [Concomitant]
     Indication: DRUG USE FOR UNKNOWN INDICATION
     Dosage: 30 ML, PRN
     Route: 048
  13. PREVACID [Concomitant]
     Indication: DRUG USE FOR UNKNOWN INDICATION
     Dosage: 30 MG, BID
     Route: 048
  14. PROCHLORPERAZINE [Concomitant]
     Indication: DRUG USE FOR UNKNOWN INDICATION
     Dosage: 10 MG, PRN
     Route: 048
  15. OXYCODONE [Concomitant]
     Indication: DRUG USE FOR UNKNOWN INDICATION
     Dosage: 20 MG, QD
     Route: 048
  16. OXYCONTIN [Concomitant]
     Indication: DRUG USE FOR UNKNOWN INDICATION
     Dosage: 20 MG, TID
     Route: 048
  17. PAMIDRONATE DISODIUM [Concomitant]
     Indication: DRUG USE FOR UNKNOWN INDICATION
     Dosage: UNK
  18. LACTULOSE [Concomitant]
     Indication: CONSTIPATION
     Dosage: 30 ML, PRN
     Route: 048
  19. PROTONIX [Concomitant]
     Indication: DRUG USE FOR UNKNOWN INDICATION
     Dosage: 40 MG, QD
     Route: 048
  20. PROTONIX [Concomitant]
     Dosage: 40 MG, QD
     Route: 048
  21. ANUSOL                             /00156502/ [Concomitant]
     Dosage: 51 %, QD
     Route: 054
  22. LIDOCAINE [Concomitant]
     Dosage: 0.5 %, PRN
     Route: 061
  23. VALTREX [Concomitant]
     Indication: PROPHYLAXIS
     Dosage: 500 MG, BID
     Route: 048
  24. CIPROFLOXACIN                      /00697202/ [Concomitant]
     Indication: DRUG USE FOR UNKNOWN INDICATION
     Dosage: 500 MG, BID
     Route: 048
  25. EMLA [Concomitant]
     Indication: DRUG USE FOR UNKNOWN INDICATION
     Dosage: 2.5 %, UNK
     Route: 061
  26. CYMBALTA [Concomitant]
     Indication: DEPRESSION
     Dosage: 20 MG, QD
     Route: 048
  27. NICOTINE [Concomitant]
     Indication: DRUG USE FOR UNKNOWN INDICATION
     Route: 062
  28. PREDNISONE [Concomitant]
     Indication: DRUG USE FOR UNKNOWN INDICATION
     Dosage: UNK
  29. NASONEX [Concomitant]
     Indication: DRUG USE FOR UNKNOWN INDICATION
     Dosage: 50 UG, UNK
     Route: 045
  30. ZOMETA [Concomitant]
     Indication: DRUG USE FOR UNKNOWN INDICATION
     Dosage: UNK
     Route: 042
     Dates: start: 20100303
  31. CALCIUM 600 + D [Concomitant]
     Indication: DRUG USE FOR UNKNOWN INDICATION
     Route: 048
  32. FISH OIL [Concomitant]
     Indication: DRUG USE FOR UNKNOWN INDICATION
     Dosage: 1200 MG, QD
     Route: 048
  33. AUGMENTIN '125' [Concomitant]
     Indication: DRUG USE FOR UNKNOWN INDICATION
     Dosage: 875 MG, BID
     Route: 048
  34. LOTREL [Concomitant]
     Indication: DRUG USE FOR UNKNOWN INDICATION
     Dosage: UNK MG, UNK
     Route: 048
  35. ENALAPRIL MALEATE [Concomitant]
     Indication: DRUG USE FOR UNKNOWN INDICATION
     Dosage: 10 MG, QD
     Route: 048
  36. AMLODIPINE [Concomitant]
     Indication: DRUG USE FOR UNKNOWN INDICATION
     Dosage: 5 MG, QD
     Route: 048
  37. BACTRIM [Concomitant]
     Indication: VAGINAL ULCERATION
  38. VITAMIN B-12 [Concomitant]
     Indication: VITAMIN B12 DEFICIENCY
  39. IRON [Concomitant]
     Indication: DRUG USE FOR UNKNOWN INDICATION
     Dosage: 800 MG, UNK
     Route: 042
     Dates: start: 20100301

REACTIONS (16)
  - ANAEMIA [None]
  - ANXIETY [None]
  - ASTHENIA [None]
  - BACK PAIN [None]
  - CONSTIPATION [None]
  - DEPRESSION [None]
  - FATIGUE [None]
  - GASTROINTESTINAL HAEMORRHAGE [None]
  - HAEMORRHOIDS [None]
  - HEADACHE [None]
  - HOT FLUSH [None]
  - JOINT SWELLING [None]
  - NEUROPATHY PERIPHERAL [None]
  - PELVIC PAIN [None]
  - PRURITUS [None]
  - VAGINAL ULCERATION [None]
